FAERS Safety Report 7939932-6 (Version None)
Quarter: 2011Q4

REPORT INFORMATION
  Report Type: 
  Country: None (occurrence: None)
  Receive Date: 20111125
  Receipt Date: 20111114
  Transmission Date: 20120403
  Serious: Yes (Other)
  Sender: FDA-Public Use
  Company Number: PHHY2011JP100687

PATIENT
  Sex: Female

DRUGS (1)
  1. TEGRETOL [Suspect]
     Indication: BIPOLAR I DISORDER
     Dosage: UNK UKN, UNK
     Route: 048

REACTIONS (4)
  - MYOPIA [None]
  - VISUAL ACUITY REDUCED [None]
  - HEARING IMPAIRED [None]
  - VISION BLURRED [None]
